FAERS Safety Report 23598630 (Version 4)
Quarter: 2024Q2

REPORT INFORMATION
  Report Type: Spontaneous
  Country: US (occurrence: US)
  Receive Date: 20240306
  Receipt Date: 20240420
  Transmission Date: 20240715
  Serious: Yes (Other)
  Sender: FDA-Public Use
  Company Number: US-HETERO-HET2024US00617

PATIENT
  Age: 59 Year
  Sex: Female
  Weight: 88.45 kg

DRUGS (3)
  1. LEVETIRACETAM [Suspect]
     Active Substance: LEVETIRACETAM
     Indication: Seizure
     Dosage: 3 DOSAGE FORM, BID
     Route: 048
     Dates: start: 202212
  2. VERAPAMIL [Concomitant]
     Active Substance: VERAPAMIL HYDROCHLORIDE
     Indication: Headache
     Dosage: UNK
     Route: 065
  3. TOPIRAMATE [Concomitant]
     Active Substance: TOPIRAMATE
     Indication: Seizure
     Dosage: 50 MILLIGRAM
     Route: 065

REACTIONS (14)
  - Swelling [Not Recovered/Not Resolved]
  - Dyspepsia [Unknown]
  - Blood thyroid stimulating hormone increased [Not Recovered/Not Resolved]
  - Abdominal discomfort [Not Recovered/Not Resolved]
  - Blood pressure decreased [Not Recovered/Not Resolved]
  - Pharyngeal swelling [Not Recovered/Not Resolved]
  - Dizziness [Not Recovered/Not Resolved]
  - Weight decreased [Not Recovered/Not Resolved]
  - Oesophageal pain [Unknown]
  - Lymphadenopathy [Unknown]
  - Arthritis [Unknown]
  - Dysphonia [Unknown]
  - Swelling face [Unknown]
  - Malaise [Unknown]

NARRATIVE: CASE EVENT DATE: 20221201
